FAERS Safety Report 11050595 (Version 2)
Quarter: 2015Q2

REPORT INFORMATION
  Report Type: Spontaneous
  Country: US (occurrence: US)
  Receive Date: 20150421
  Receipt Date: 20150430
  Transmission Date: 20150821
  Serious: No
  Sender: FDA-Public Use
  Company Number: US-BAYER-2015-151262

PATIENT
  Age: 53 Year
  Sex: Female

DRUGS (1)
  1. GADAVIST [Suspect]
     Active Substance: GADOBUTROL
     Indication: NUCLEAR MAGNETIC RESONANCE IMAGING LIVER
     Dosage: 4.5 ML, ONCE
     Dates: start: 20150418, end: 20150418

REACTIONS (2)
  - Vomiting [None]
  - Product use issue [None]

NARRATIVE: CASE EVENT DATE: 20150418
